FAERS Safety Report 4894392-7 (Version None)
Quarter: 2006Q1

REPORT INFORMATION
  Report Type: 
  Country: None (occurrence: None)
  Receive Date: 20060127
  Receipt Date: 20060116
  Transmission Date: 20060701
  Serious: Yes (Death, Other)
  Sender: FDA-Public Use
  Company Number: DE-BRISTOL-MYERS SQUIBB COMPANY-13258033

PATIENT
  Age: 67 Year
  Sex: Male

DRUGS (9)
  1. ERBITUX [Suspect]
     Indication: LARYNGEAL CANCER
     Route: 042
     Dates: start: 20050901, end: 20051201
  2. FRAGMIN [Concomitant]
     Indication: DRUG USE FOR UNKNOWN INDICATION
  3. PALLADON [Concomitant]
     Indication: DRUG USE FOR UNKNOWN INDICATION
  4. PANTOZOL [Concomitant]
     Indication: DRUG USE FOR UNKNOWN INDICATION
  5. VOLTAREN [Concomitant]
     Indication: DRUG USE FOR UNKNOWN INDICATION
  6. ZYLORIC [Concomitant]
     Indication: DRUG USE FOR UNKNOWN INDICATION
  7. DECORTIN [Concomitant]
  8. METOCLOPRAMIDE [Concomitant]
     Indication: DRUG USE FOR UNKNOWN INDICATION
  9. RIOPAN PLUS [Concomitant]
     Indication: DRUG USE FOR UNKNOWN INDICATION

REACTIONS (5)
  - BLISTER [None]
  - LARYNGEAL CANCER [None]
  - OEDEMA [None]
  - OEDEMA PERIPHERAL [None]
  - POOR PERIPHERAL CIRCULATION [None]
